FAERS Safety Report 9549848 (Version 2)
Quarter: 2014Q2

REPORT INFORMATION
  Report Type: Spontaneous
  Country: FR (occurrence: FR)
  Receive Date: 20130924
  Receipt Date: 20140522
  Transmission Date: 20141212
  Serious: Yes (Death, Hospitalization)
  Sender: FDA-Public Use
  Company Number: FR-BAXTER-2013BAX036589

PATIENT
  Sex: Female

DRUGS (21)
  1. ENDOXAN 2000 MG, LYOPHILISAT POUR SOLUTION INJECTABLE [Suspect]
     Indication: B-CELL LYMPHOMA
     Route: 042
     Dates: start: 2007, end: 200801
  2. DOXORUBICIN HYDROCHLORIDE [Suspect]
     Indication: B-CELL LYMPHOMA
     Route: 051
     Dates: start: 2007, end: 200801
  3. VINCRISTINE SULPHATE [Suspect]
     Indication: B-CELL LYMPHOMA
     Route: 051
     Dates: start: 2007, end: 200801
  4. PREDNISONE [Suspect]
     Indication: B-CELL LYMPHOMA
     Route: 065
     Dates: start: 2007, end: 200801
  5. INTERFERON ALFA-2B [Suspect]
     Indication: B-CELL LYMPHOMA
     Route: 058
     Dates: start: 2007
  6. MABTHERA [Suspect]
     Indication: B-CELL LYMPHOMA
     Route: 051
     Dates: start: 2009, end: 201205
  7. MABTHERA [Suspect]
     Dates: end: 201012
  8. ZEVALIN [Suspect]
     Indication: B-CELL LYMPHOMA
     Route: 042
     Dates: start: 200911, end: 200911
  9. LEVACT [Suspect]
     Indication: B-CELL LYMPHOMA
     Route: 042
     Dates: start: 201109, end: 201205
  10. PACKED RED BLOOD CELLS [Concomitant]
     Indication: PRODUCT USED FOR UNKNOWN INDICATION
     Route: 065
     Dates: start: 20130529
  11. PACKED RED BLOOD CELLS [Concomitant]
     Route: 065
     Dates: start: 201307
  12. LEDERFOLINE [Concomitant]
     Indication: PRODUCT USED FOR UNKNOWN INDICATION
     Route: 065
  13. TRAMADOL [Concomitant]
     Indication: PRODUCT USED FOR UNKNOWN INDICATION
     Route: 065
  14. LYRICA [Concomitant]
     Indication: PRODUCT USED FOR UNKNOWN INDICATION
     Route: 065
  15. BACTRIM [Concomitant]
     Indication: PRODUCT USED FOR UNKNOWN INDICATION
     Route: 065
  16. RASILEZ [Concomitant]
     Indication: PRODUCT USED FOR UNKNOWN INDICATION
     Route: 065
  17. PANTOPRAZOLE [Concomitant]
     Indication: PRODUCT USED FOR UNKNOWN INDICATION
     Route: 065
  18. MOVICOL [Concomitant]
     Indication: PRODUCT USED FOR UNKNOWN INDICATION
     Route: 065
  19. DOMPERIDONE [Concomitant]
     Indication: PRODUCT USED FOR UNKNOWN INDICATION
     Route: 065
  20. BINOCRIT [Concomitant]
     Indication: ANAEMIA
     Route: 065
  21. ARANESP [Concomitant]
     Indication: ANAEMIA
     Route: 065

REACTIONS (2)
  - Death [Fatal]
  - Myelodysplastic syndrome [Not Recovered/Not Resolved]
